FAERS Safety Report 17502105 (Version 1)
Quarter: 2020Q1

REPORT INFORMATION
  Report Type: Spontaneous
  Country: US (occurrence: US)
  Receive Date: 20200305
  Receipt Date: 20200305
  Transmission Date: 20200409
  Serious: No
  Sender: FDA-Public Use
  Company Number: None

PATIENT
  Age: 34 Year
  Sex: Female

DRUGS (1)
  1. TRINTELLIX [Suspect]
     Active Substance: VORTIOXETINE HYDROBROMIDE
     Route: 048

REACTIONS (5)
  - Aggression [None]
  - Drug ineffective [None]
  - Alcohol use [None]
  - Anger [None]
  - Weight increased [None]

NARRATIVE: CASE EVENT DATE: 20200301
